FAERS Safety Report 7282590-7 (Version None)
Quarter: 2011Q1

REPORT INFORMATION
  Report Type: 
  Country: None (occurrence: None)
  Receive Date: 20110209
  Receipt Date: 20110203
  Transmission Date: 20110831
  Serious: No
  Sender: FDA-Public Use
  Company Number: US-PFIZER INC-2011025296

PATIENT
  Sex: Female
  Weight: 57 kg

DRUGS (1)
  1. PREMARIN [Suspect]
     Indication: MENOPAUSAL SYMPTOMS
     Dosage: UNK
     Route: 067
     Dates: start: 20110130

REACTIONS (4)
  - MUSCLE SPASMS [None]
  - VULVOVAGINAL PRURITUS [None]
  - VULVOVAGINAL BURNING SENSATION [None]
  - ABDOMINAL PAIN [None]
